FAERS Safety Report 9604285 (Version 1)
Quarter: 2013Q4

REPORT INFORMATION
  Report Type: Report from Study
  Country: BR (occurrence: BR)
  Receive Date: 20131008
  Receipt Date: 20131008
  Transmission Date: 20140711
  Serious: Yes (Death)
  Sender: FDA-Public Use
  Company Number: PHHY2013BR112094

PATIENT
  Sex: Male
  Weight: 48 kg

DRUGS (1)
  1. FORASEQ [Suspect]
     Indication: EMPHYSEMA
     Dosage: 1 DF (12/400 UG) IN THE MORNING AND AT NIGHT

REACTIONS (1)
  - Emphysema [Fatal]
